FAERS Safety Report 7452186-2 (Version None)
Quarter: 2011Q2

REPORT INFORMATION
  Report Type: 
  Country: None (occurrence: None)
  Receive Date: 20110502
  Receipt Date: 20110121
  Transmission Date: 20111010
  Serious: Yes (Other)
  Sender: FDA-Public Use
  Company Number: US-BAYER-2011-007845

PATIENT
  Age: 21 Year
  Sex: Female
  Weight: 52.154 kg

DRUGS (4)
  1. PROZAC [Concomitant]
     Indication: DEPRESSION
     Dosage: UNK
     Dates: start: 20071001, end: 20071201
  2. IBUPROFEN [Concomitant]
     Dosage: UNK
     Dates: start: 20060926
  3. YAZ [Suspect]
     Indication: CONTRACEPTION
     Dosage: UNK
     Dates: start: 20071001, end: 20080301
  4. YAZ [Suspect]
     Indication: ACNE

REACTIONS (8)
  - EMOTIONAL DISTRESS [None]
  - CHOLECYSTECTOMY [None]
  - CHEST PAIN [None]
  - DEPRESSION [None]
  - PAIN [None]
  - FEAR [None]
  - NERVOUSNESS [None]
  - VOMITING [None]
